FAERS Safety Report 7137431-5 (Version None)
Quarter: 2010Q4

REPORT INFORMATION
  Report Type: 
  Country: None (occurrence: None)
  Receive Date: 20101206
  Receipt Date: 20101129
  Transmission Date: 20110411
  Serious: Yes (Hospitalization)
  Sender: FDA-Public Use
  Company Number: IT-JNJFOC-20101005509

PATIENT
  Sex: Female

DRUGS (16)
  1. LEVOXACIN [Suspect]
     Indication: POST PROCEDURAL INFECTION
     Route: 042
  2. DURAGESIC-100 [Suspect]
     Indication: ILL-DEFINED DISORDER
     Route: 062
  3. ESOMEPRAZOLE [Concomitant]
  4. LASIX [Concomitant]
  5. FLUCONAZOLE [Concomitant]
  6. METRONIDAZOLE [Concomitant]
  7. ZYLORIC [Concomitant]
  8. ALDACTONE [Concomitant]
  9. TRIATEC [Concomitant]
  10. BISOPROLOL FUMARATE [Concomitant]
  11. ASPIRIN [Concomitant]
  12. LANTUS [Concomitant]
  13. PLASIL [Concomitant]
  14. TACHIDOL [Concomitant]
  15. CLEXANE [Concomitant]
  16. UNKNOWN MEDICATION [Concomitant]

REACTIONS (2)
  - GRAND MAL CONVULSION [None]
  - LOSS OF CONSCIOUSNESS [None]
